FAERS Safety Report 19500915 (Version 1)
Quarter: 2021Q3

REPORT INFORMATION
  Report Type: Spontaneous
  Country: US (occurrence: US)
  Receive Date: 20210706
  Receipt Date: 20210706
  Transmission Date: 20211014
  Serious: Yes (Hospitalization)
  Sender: FDA-Public Use
  Company Number: None

PATIENT
  Age: 73 Year
  Sex: Male

DRUGS (20)
  1. GLUCOS/CHOND [Concomitant]
  2. SIMVASTATIN. [Concomitant]
     Active Substance: SIMVASTATIN
  3. LIDOCAINE. [Concomitant]
     Active Substance: LIDOCAINE
  4. LISINOPRIL. [Concomitant]
     Active Substance: LISINOPRIL
  5. FERROUS SULF [Concomitant]
     Active Substance: FERROUS SULFATE
  6. HYDROCO/APAP [Concomitant]
     Active Substance: ACETAMINOPHEN\HYDROCODONE
  7. THE MAGIC BULLET [Concomitant]
     Active Substance: BISACODYL
  8. BUPROPION. [Concomitant]
     Active Substance: BUPROPION
  9. CHOLECALCIFE [Concomitant]
  10. MAGNESIUM [Concomitant]
     Active Substance: MAGNESIUM
  11. VITAMIN B [Concomitant]
     Active Substance: VITAMIN B
  12. ADVAIR HFA [Concomitant]
     Active Substance: FLUTICASONE PROPIONATE\SALMETEROL XINAFOATE
  13. BENZOCAINE. [Concomitant]
     Active Substance: BENZOCAINE
  14. CLOTRIM/BETA [Concomitant]
  15. FLUTICASONE. [Concomitant]
     Active Substance: FLUTICASONE
  16. SPIRIVA [Concomitant]
     Active Substance: TIOTROPIUM BROMIDE MONOHYDRATE
  17. HUMIRA [Suspect]
     Active Substance: ADALIMUMAB
     Indication: CROHN^S DISEASE
     Dosage: ?          OTHER FREQUENCY:EVERY 14 DAYS;?
     Route: 058
     Dates: start: 20170712
  18. OMEPRAZOLE. [Concomitant]
     Active Substance: OMEPRAZOLE
  19. CALCITRIOL. [Concomitant]
     Active Substance: CALCITRIOL
  20. POTASSIUM [Concomitant]
     Active Substance: POTASSIUM

REACTIONS (2)
  - Hospitalisation [None]
  - Therapy interrupted [None]

NARRATIVE: CASE EVENT DATE: 20210615
